FAERS Safety Report 8457956-X (Version None)
Quarter: 2012Q2

REPORT INFORMATION
  Report Type: 
  Country: None (occurrence: None)
  Receive Date: 20120615
  Receipt Date: 20120613
  Transmission Date: 20120825
  Serious: Yes (Death)
  Sender: FDA-Public Use
  Company Number: ADR-2011-10728

PATIENT
  Sex: Male

DRUGS (1)
  1. LIORESAL [Suspect]
     Indication: MUSCLE SPASTICITY
     Dosage: 429.9 MCG, DAILY, INTR
     Route: 037

REACTIONS (6)
  - DECUBITUS ULCER [None]
  - QUADRIPLEGIA [None]
  - SPINAL CORD INJURY [None]
  - STAB WOUND [None]
  - HOMICIDE [None]
  - OSTEOMYELITIS [None]
